FAERS Safety Report 4394277-9 (Version None)
Quarter: 2004Q3

REPORT INFORMATION
  Report Type: 
  Country: None (occurrence: None)
  Receive Date: 20040707
  Receipt Date: 20040625
  Transmission Date: 20050211
  Serious: Yes (Hospitalization)
  Sender: FDA-Public Use
  Company Number: 2004221186US

PATIENT
  Age: 35 Year
  Sex: Female

DRUGS (1)
  1. CELEBREX [Suspect]
     Indication: ARTHRALGIA
     Dosage: 200 MG, QD, UNK
     Dates: start: 20040620, end: 20040624

REACTIONS (2)
  - CHEST DISCOMFORT [None]
  - EYE IRRITATION [None]
